FAERS Safety Report 9867566 (Version 1)
Quarter: 2014Q1

REPORT INFORMATION
  Report Type: Spontaneous
  Country: US (occurrence: US)
  Receive Date: 20140204
  Receipt Date: 20140204
  Transmission Date: 20141002
  Serious: No
  Sender: FDA-Public Use
  Company Number: US-GALDERMA-US13001824

PATIENT
  Sex: Female

DRUGS (3)
  1. EPIDUO [Suspect]
     Route: 061
     Dates: start: 201306
  2. CETAPHIL DERMACONTROL MOISTURIZER SPF 30 [Suspect]
     Route: 061
     Dates: start: 201306, end: 201306
  3. RETINOID FACIAL WASH [Concomitant]
     Indication: THERAPEUTIC SKIN CARE TOPICAL
     Route: 061

REACTIONS (3)
  - Swelling face [Unknown]
  - Erythema [Unknown]
  - Pruritus [Unknown]
